FAERS Safety Report 7609028-1 (Version None)
Quarter: 2011Q3

REPORT INFORMATION
  Report Type: 
  Country: None (occurrence: None)
  Receive Date: 20110714
  Receipt Date: 20110711
  Transmission Date: 20111222
  Serious: Yes (Hospitalization)
  Sender: FDA-Public Use
  Company Number: FR-ROCHE-784389

PATIENT
  Sex: Female

DRUGS (8)
  1. VENLAFAXINE [Suspect]
     Route: 048
     Dates: start: 20110125, end: 20110218
  2. ACETAMINOPHEN [Concomitant]
  3. KAYEXALATE [Concomitant]
  4. CLONAZEPAM [Suspect]
     Route: 048
     Dates: end: 20110223
  5. MIRTAZAPINE [Suspect]
     Dosage: DOSE 15 MG/ML
     Route: 048
     Dates: start: 20110219, end: 20110223
  6. DEBRIDAT [Concomitant]
  7. OXAZEPAM [Concomitant]
  8. TRAMADOL HCL [Concomitant]

REACTIONS (2)
  - HAEMOLYTIC ANAEMIA [None]
  - LEUKOPENIA [None]
